APPROVED DRUG PRODUCT: AMOXICILLIN
Active Ingredient: AMOXICILLIN
Strength: 125MG
Dosage Form/Route: TABLET, CHEWABLE;ORAL
Application: A064139 | Product #001
Applicant: CHARTWELL RX SCIENCES LLC
Approved: Jan 29, 1996 | RLD: No | RS: No | Type: DISCN